FAERS Safety Report 13872952 (Version 1)
Quarter: 2017Q3

REPORT INFORMATION
  Report Type: Spontaneous
  Country: US (occurrence: US)
  Receive Date: 20170816
  Receipt Date: 20170816
  Transmission Date: 20171127
  Serious: No
  Sender: FDA-Public Use
  Company Number: US-TARO-2017TAR00187

PATIENT
  Age: 67 Year
  Sex: Male
  Weight: 81.63 kg

DRUGS (6)
  1. BACITRACIN ZINC OINTMENT [Suspect]
     Active Substance: BACITRACIN ZINC
     Indication: DRY SKIN
  2. OXYCODONE [Concomitant]
     Active Substance: OXYCODONE
  3. TERBINAFINE HCL CREAM 1% (ATHLETES FOOT) [Suspect]
     Active Substance: TERBINAFINE HYDROCHLORIDE
     Indication: FUNGAL SKIN INFECTION
     Dosage: UNK, ONCE
     Route: 061
     Dates: start: 20170317, end: 20170317
  4. TERBINAFINE HCL CREAM 1% (ATHLETES FOOT) [Suspect]
     Active Substance: TERBINAFINE HYDROCHLORIDE
     Indication: DRY SKIN
  5. BACITRACIN ZINC OINTMENT [Suspect]
     Active Substance: BACITRACIN ZINC
     Indication: FUNGAL SKIN INFECTION
     Dosage: UNK, ONCE
     Route: 061
     Dates: start: 20170317, end: 20170317
  6. OTHER UNSPECIFIED MEDICATIONS [Concomitant]
     Active Substance: UNSPECIFIED INGREDIENT

REACTIONS (4)
  - Feeling abnormal [Recovered/Resolved]
  - Product preparation error [Recovered/Resolved]
  - Refusal of treatment by patient [None]
  - Application site hypoaesthesia [Recovered/Resolved]

NARRATIVE: CASE EVENT DATE: 20170317
